FAERS Safety Report 8900494 (Version 3)
Quarter: 2012Q4

REPORT INFORMATION
  Report Type: 
  Country: FR (occurrence: FR)
  Receive Date: 20121109
  Receipt Date: 20121218
  Transmission Date: 20130627
  Serious: Yes (Other)
  Sender: FDA-Public Use
  Company Number: FR-AMGEN-FRASP2012071282

PATIENT
  Age: 64 Year
  Sex: Male

DRUGS (4)
  1. ENBREL [Suspect]
     Indication: ANKYLOSING SPONDYLITIS
     Dosage: 50 mg, weekly
     Dates: start: 2005, end: 201112
  2. ENBREL [Suspect]
     Indication: PSORIASIS
     Dosage: UNK
  3. CYCLADOL [Concomitant]
     Dosage: UNK
  4. APRANAX                            /00256201/ [Concomitant]
     Dosage: UNK

REACTIONS (2)
  - Lung neoplasm malignant [Unknown]
  - Tremor [Unknown]
